FAERS Safety Report 5576134-5 (Version None)
Quarter: 2007Q4

REPORT INFORMATION
  Report Type: 
  Country: None (occurrence: None)
  Receive Date: 20071228
  Receipt Date: 20071102
  Transmission Date: 20080405
  Serious: No
  Sender: FDA-Public Use
  Company Number: US-BAYER-200711706BCC

PATIENT
  Sex: Female
  Weight: 56 kg

DRUGS (11)
  1. ALEVE [Suspect]
     Indication: BACK PAIN
     Dosage: TOTAL DAILY DOSE: 220 MG  UNIT DOSE: 220 MG
     Route: 048
  2. ALEVE [Suspect]
     Dosage: UNIT DOSE: 220 MG
     Route: 048
     Dates: start: 20070501
  3. ASPIRIN [Concomitant]
  4. PREVACID [Concomitant]
  5. NORVASC [Concomitant]
  6. PRAVACHOL [Concomitant]
  7. MULTI-VITAMIN [Concomitant]
  8. HYDROCHLOROTHIAZIDE [Concomitant]
  9. AMITRIPTLINE HCL [Concomitant]
  10. CALCIUM PILLS [Concomitant]
  11. MACROBID [Concomitant]

REACTIONS (2)
  - HYPOAESTHESIA [None]
  - MUSCULOSKELETAL PAIN [None]
